FAERS Safety Report 10392782 (Version 2)
Quarter: 2014Q3

REPORT INFORMATION
  Report Type: Spontaneous
  Country: US (occurrence: US)
  Receive Date: 20140819
  Receipt Date: 20140930
  Transmission Date: 20150326
  Serious: No
  Sender: FDA-Public Use
  Company Number: US-009507513-1408USA001787

PATIENT
  Age: 29 Year
  Sex: Female

DRUGS (2)
  1. ASMANEX [Suspect]
     Active Substance: MOMETASONE FUROATE
     Indication: RESPIRATORY DISORDER
     Dosage: ONE PUFF BY MOUTH TWICE A DAY
     Route: 055
     Dates: start: 20140801
  2. PROVENTIL [Concomitant]
     Active Substance: ALBUTEROL
     Indication: RESPIRATORY DISORDER

REACTIONS (3)
  - Drug dose omission [Unknown]
  - No adverse event [Unknown]
  - Product container issue [Unknown]

NARRATIVE: CASE EVENT DATE: 20140801
